FAERS Safety Report 5975362-4 (Version None)
Quarter: 2008Q4

REPORT INFORMATION
  Report Type: 
  Country: None (occurrence: None)
  Receive Date: 20081202
  Receipt Date: 20081124
  Transmission Date: 20090506
  Serious: Yes (Hospitalization)
  Sender: FDA-Public Use
  Company Number: US-BIOGENIDEC-2008BI024964

PATIENT
  Age: 49 Year
  Sex: Female

DRUGS (1)
  1. TYSABRI [Suspect]
     Indication: MULTIPLE SCLEROSIS
     Route: 042
     Dates: start: 20060927

REACTIONS (5)
  - ASTHENIA [None]
  - DRUG DELIVERY DEVICE IMPLANTATION [None]
  - GAIT DISTURBANCE [None]
  - MUSCLE SPASTICITY [None]
  - NERVOUS SYSTEM DISORDER [None]
